FAERS Safety Report 9399304 (Version 1)
Quarter: 2013Q3

REPORT INFORMATION
  Report Type: Spontaneous
  Country: US (occurrence: US)
  Receive Date: 20130715
  Receipt Date: 20130715
  Transmission Date: 20140515
  Serious: No
  Sender: FDA-Public Use
  Company Number: US-PFIZER INC-2013201253

PATIENT
  Age: 22 Year
  Sex: Male

DRUGS (1)
  1. CHANTIX [Suspect]
     Dosage: STARTING PACK (0.5MG AND 1MG TABLETS)
     Dates: start: 20100528, end: 20100625

REACTIONS (1)
  - Aggression [Unknown]
